FAERS Safety Report 7904851-8 (Version None)
Quarter: 2011Q4

REPORT INFORMATION
  Report Type: 
  Country: None (occurrence: None)
  Receive Date: 20111109
  Receipt Date: 20111027
  Transmission Date: 20120403
  Serious: Yes (Other)
  Sender: FDA-Public Use
  Company Number: PHHY2011DE95406

PATIENT
  Sex: Male

DRUGS (2)
  1. SILDENAFIL [Concomitant]
     Dosage: 60 MG, UNK
     Route: 048
     Dates: start: 20111013
  2. SANDOSTATIN LAR [Suspect]
     Dosage: UNK UKN, UNK
     Route: 030
     Dates: start: 20100101

REACTIONS (3)
  - HEADACHE [None]
  - PSYCHOTIC DISORDER [None]
  - MIGRAINE [None]
